FAERS Safety Report 6390334-6 (Version None)
Quarter: 2009Q4

REPORT INFORMATION
  Report Type: 
  Country: None (occurrence: None)
  Receive Date: 20091006
  Receipt Date: 20090713
  Transmission Date: 20100525
  Serious: Yes (Hospitalization)
  Sender: FDA-Public Use
  Company Number: US-ABBOTT-09P-163-0600790-00

PATIENT
  Sex: Male

DRUGS (3)
  1. TRILIPIX [Suspect]
     Indication: DRUG USE FOR UNKNOWN INDICATION
     Dosage: UNKNOWN
  2. CRESTOR [Suspect]
     Indication: DRUG USE FOR UNKNOWN INDICATION
     Dosage: UNKNOWN
  3. CRESTOR [Concomitant]

REACTIONS (3)
  - HEPATITIS ACUTE [None]
  - JAUNDICE [None]
  - LIVER FUNCTION TEST ABNORMAL [None]
